FAERS Safety Report 14656958 (Version 1)
Quarter: 2018Q1

REPORT INFORMATION
  Report Type: Spontaneous
  Country: US (occurrence: US)
  Receive Date: 20180319
  Receipt Date: 20180319
  Transmission Date: 20180509
  Serious: No
  Sender: FDA-Public Use
  Company Number: US-SA-2017SA204884

PATIENT
  Age: 67 Year
  Sex: Female
  Weight: 105 kg

DRUGS (6)
  1. NASACORT ALLERGY 24HR [Suspect]
     Active Substance: TRIAMCINOLONE ACETONIDE
     Indication: SEASONAL ALLERGY
     Dosage: 2?SPRAYS/?NOSTRIL
     Route: 045
     Dates: start: 20171018, end: 20171018
  2. RESTASIS [Concomitant]
     Active Substance: CYCLOSPORINE
     Indication: DRY EYE
     Route: 065
  3. NASACORT ALLERGY 24HR [Suspect]
     Active Substance: TRIAMCINOLONE ACETONIDE
     Indication: RHINORRHOEA
     Dosage: 2?SPRAYS/?NOSTRIL
     Route: 045
     Dates: start: 20171018, end: 20171018
  4. NASACORT ALLERGY 24HR [Suspect]
     Active Substance: TRIAMCINOLONE ACETONIDE
     Indication: MULTIPLE ALLERGIES
     Dosage: 2?SPRAYS/?NOSTRIL
     Route: 045
     Dates: start: 20171018, end: 20171018
  5. NASACORT ALLERGY 24HR [Suspect]
     Active Substance: TRIAMCINOLONE ACETONIDE
     Indication: HYPERSENSITIVITY
     Dosage: 2?SPRAYS/?NOSTRIL
     Route: 045
     Dates: start: 20171018, end: 20171018
  6. NASACORT ALLERGY 24HR [Suspect]
     Active Substance: TRIAMCINOLONE ACETONIDE
     Indication: COUGH
     Dosage: 2?SPRAYS/?NOSTRIL
     Route: 045
     Dates: start: 20171018, end: 20171018

REACTIONS (3)
  - Product container issue [Unknown]
  - Overdose [Unknown]
  - Feeling abnormal [Recovered/Resolved]

NARRATIVE: CASE EVENT DATE: 20171018
